FAERS Safety Report 8016318-X (Version None)
Quarter: 2011Q4

REPORT INFORMATION
  Report Type: 
  Country: None (occurrence: None)
  Receive Date: 20111230
  Receipt Date: 20111219
  Transmission Date: 20120403
  Serious: No
  Sender: FDA-Public Use
  Company Number: JP-MERCK-1112USA00668

PATIENT
  Age: 66 Year
  Sex: Female

DRUGS (16)
  1. ONON [Suspect]
     Indication: ASTHMA
     Route: 048
     Dates: start: 20100811
  2. METFORMIN HCL [Suspect]
     Route: 048
     Dates: start: 20100811
  3. ALDACTONE [Concomitant]
     Route: 065
     Dates: start: 20111107
  4. SLO-BID [Suspect]
     Route: 048
     Dates: start: 20110811
  5. LASIX [Concomitant]
     Route: 065
     Dates: start: 20111107
  6. LANIRAPID [Concomitant]
     Route: 065
     Dates: start: 20111107
  7. CEFAZOLIN SODIUM [Concomitant]
     Route: 065
  8. DIMELIN [Concomitant]
     Route: 065
     Dates: start: 20111107
  9. BASEN [Suspect]
     Route: 048
     Dates: start: 20100811
  10. SPIRONOLACTONE [Concomitant]
     Route: 065
  11. JANUVIA [Suspect]
     Indication: TYPE 2 DIABETES MELLITUS
     Route: 048
     Dates: start: 20100811, end: 20111107
  12. DIART [Concomitant]
     Route: 065
     Dates: end: 20111107
  13. ISOSORBIDE DINITRATE [Concomitant]
     Route: 065
     Dates: start: 20111107
  14. LEBENIN [Concomitant]
     Route: 065
  15. ACTOS [Concomitant]
     Indication: TYPE 2 DIABETES MELLITUS
     Route: 065
     Dates: end: 20111107
  16. SLOW-K [Suspect]
     Route: 048
     Dates: start: 20110811

REACTIONS (1)
  - ANAEMIA [None]
